FAERS Safety Report 7334551-7 (Version None)
Quarter: 2011Q1

REPORT INFORMATION
  Report Type: 
  Country: None (occurrence: None)
  Receive Date: 20110224
  Receipt Date: 20110216
  Transmission Date: 20110831
  Serious: Yes (Other)
  Sender: FDA-Public Use
  Company Number: 015588

PATIENT
  Sex: Female
  Weight: 79 kg

DRUGS (8)
  1. TAUXIB [Concomitant]
  2. LOSEC /00661201/ [Concomitant]
  3. SERETIDE /01420901/ [Concomitant]
  4. ARCOXIA [Concomitant]
  5. PRITOR /01506701/ [Concomitant]
  6. CERTOLIZUMAB PEGOL (CERTOLIZUMAB PEGOL) [Suspect]
     Indication: RHEUMATOID ARTHRITIS
     Dosage: (400 MG 1X/2 WEEKS SUBCUTANEOUS), (200 MG 1X/2 WEEKS SUBCUTANEOUS)
     Route: 058
     Dates: start: 20091006, end: 20091103
  7. CERTOLIZUMAB PEGOL (CERTOLIZUMAB PEGOL) [Suspect]
     Indication: RHEUMATOID ARTHRITIS
     Dosage: (400 MG 1X/2 WEEKS SUBCUTANEOUS), (200 MG 1X/2 WEEKS SUBCUTANEOUS)
     Route: 058
     Dates: start: 20091117, end: 20100715
  8. ACETAMINOPHEN [Concomitant]

REACTIONS (1)
  - MYCOSIS FUNGOIDES STAGE I [None]
